FAERS Safety Report 7950587-7 (Version None)
Quarter: 2011Q4

REPORT INFORMATION
  Report Type: 
  Country: None (occurrence: None)
  Receive Date: 20111130
  Receipt Date: 20111125
  Transmission Date: 20120403
  Serious: Yes (Death)
  Sender: FDA-Public Use
  Company Number: AR-AMGEN-ARGSP2011060908

PATIENT
  Age: 71 Year
  Sex: Female

DRUGS (5)
  1. ENBREL [Suspect]
     Indication: RHEUMATOID ARTHRITIS
     Dosage: 50 MG, WEEKLY
     Route: 058
     Dates: start: 20090602, end: 20110601
  2. ETORICOXIB [Concomitant]
     Route: 048
  3. GLIDANIL                           /00145301/ [Concomitant]
  4. METHOTREXATE [Concomitant]
     Dosage: UNK
     Route: 048
     Dates: end: 20110601
  5. AMLODIPINE [Concomitant]
     Dosage: UNK
     Route: 048

REACTIONS (1)
  - BREAST CANCER [None]
